FAERS Safety Report 19483596 (Version 4)
Quarter: 2021Q3

REPORT INFORMATION
  Report Type: Spontaneous
  Country: US (occurrence: US)
  Receive Date: 20210701
  Receipt Date: 20210809
  Transmission Date: 20211014
  Serious: Yes (Death, Other)
  Sender: FDA-Public Use
  Company Number: NVSC2021US147228

PATIENT
  Age: 12 Year
  Sex: Female
  Weight: 47.9 kg

DRUGS (1)
  1. KYMRIAH [Suspect]
     Active Substance: TISAGENLECLEUCEL
     Indication: ACUTE LYMPHOCYTIC LEUKAEMIA
     Dosage: 0.9E8, ONCE/SINGLE
     Route: 041
     Dates: start: 20210524, end: 20210524

REACTIONS (29)
  - Respiratory failure [Unknown]
  - Hepatic function abnormal [Unknown]
  - Serum ferritin decreased [Unknown]
  - Serum ferritin increased [Recovering/Resolving]
  - Cardio-respiratory arrest [Fatal]
  - Bacteraemia [Unknown]
  - Interstitial lung disease [Unknown]
  - Metabolic acidosis [Unknown]
  - Coagulopathy [Unknown]
  - Acute kidney injury [Unknown]
  - White blood cell count increased [Unknown]
  - Lactic acidosis [Fatal]
  - Multiple organ dysfunction syndrome [Unknown]
  - Cytokine release syndrome [Unknown]
  - Organising pneumonia [Unknown]
  - Disseminated intravascular coagulation [Unknown]
  - Left ventricular dysfunction [Unknown]
  - Acute lymphocytic leukaemia [Fatal]
  - Staphylococcal infection [Unknown]
  - Haemophagocytic lymphohistiocytosis [Unknown]
  - Transfusion-related circulatory overload [Unknown]
  - Blast cell count increased [Fatal]
  - Acute hepatic failure [Unknown]
  - C-reactive protein decreased [Recovered/Resolved]
  - Pyrexia [Not Recovered/Not Resolved]
  - Hepatic failure [Unknown]
  - Enterococcal infection [Unknown]
  - Pulmonary alveolar haemorrhage [Unknown]
  - Pyrexia [Recovered/Resolved]

NARRATIVE: CASE EVENT DATE: 20210619
